FAERS Safety Report 6491686-9 (Version None)
Quarter: 2009Q4

REPORT INFORMATION
  Report Type: 
  Country: None (occurrence: None)
  Receive Date: 20091207
  Receipt Date: 20091125
  Transmission Date: 20100525
  Serious: Yes (Other)
  Sender: FDA-Public Use
  Company Number: 2009EU000883

PATIENT
  Age: 54 Year
  Sex: Male

DRUGS (2)
  1. PROGRAF [Suspect]
     Indication: RENAL TRANSPLANT
     Dosage: 2 MG, BID, ORAL, 2.5 MG, BID, ORAL, 1.5 MG, BID, ORAL
     Route: 048
  2. MIMPARA (CINACALCET) [Concomitant]

REACTIONS (7)
  - DRUG INTERACTION [None]
  - GAIT DISTURBANCE [None]
  - IMMUNOSUPPRESSANT DRUG LEVEL INCREASED [None]
  - NEUROTOXICITY [None]
  - POLYNEUROPATHY [None]
  - SENSORY DISTURBANCE [None]
  - TREMOR [None]
